FAERS Safety Report 25421664 (Version 2)
Quarter: 2025Q3

REPORT INFORMATION
  Report Type: Spontaneous
  Country: EU (occurrence: EU)
  Receive Date: 20250611
  Receipt Date: 20250701
  Transmission Date: 20251021
  Serious: Yes (Life-Threatening, Hospitalization)
  Sender: TEVA
  Company Number: None

PATIENT
  Age: 24 Year
  Sex: Female

DRUGS (4)
  1. NAPROXEN [Interacting]
     Active Substance: NAPROXEN
     Indication: Suicide attempt
     Route: 048
     Dates: start: 20250425, end: 20250425
  2. IBUPROFEN [Interacting]
     Active Substance: IBUPROFEN
     Indication: Suicide attempt
     Route: 048
     Dates: start: 20250425, end: 20250425
  3. METAMIZOLE MAGNESIUM [Interacting]
     Active Substance: METAMIZOLE MAGNESIUM
     Indication: Suicide attempt
     Route: 048
     Dates: start: 20250425, end: 20250425
  4. ACETAMINOPHEN [Interacting]
     Active Substance: ACETAMINOPHEN
     Indication: Suicide attempt
     Route: 048
     Dates: start: 20250424, end: 20250425

REACTIONS (3)
  - Hepatocellular injury [Recovering/Resolving]
  - Coagulopathy [Recovered/Resolved]
  - Intentional overdose [Recovered/Resolved]

NARRATIVE: CASE EVENT DATE: 20250424
